FAERS Safety Report 23697122 (Version 1)
Quarter: 2024Q2

REPORT INFORMATION
  Report Type: Spontaneous
  Country: US (occurrence: None)
  Receive Date: 20240401
  Receipt Date: 20240401
  Transmission Date: 20240716
  Serious: Yes (Other)
  Sender: FDA-Public Use
  Company Number: None

PATIENT
  Age: 77 Year
  Sex: Female
  Weight: 74.25 kg

DRUGS (13)
  1. REGENER-EYES LITE [Suspect]
     Active Substance: GLYCERIN
     Indication: Dry eye
     Dosage: 1 DROP EVERY 4 HOURS OPHTHALMIC
     Route: 047
     Dates: start: 20210817, end: 20210822
  2. PROZAC [Concomitant]
     Active Substance: FLUOXETINE HYDROCHLORIDE
  3. CANDASARTAN [Concomitant]
  4. HYDROCHLOROTHIAZIDE [Concomitant]
     Active Substance: HYDROCHLOROTHIAZIDE
  5. ZOLIPIDEM [Concomitant]
  6. ASPIRIN [Concomitant]
     Active Substance: ASPIRIN
  7. FISH OIL [Concomitant]
     Active Substance: FISH OIL
  8. VITAMIN D NOS [Concomitant]
     Active Substance: VITAMIN D NOS
  9. FOLATE SODIUM [Concomitant]
     Active Substance: FOLATE SODIUM
  10. DIETARY SUPPLEMENT [Concomitant]
     Active Substance: DIETARY SUPPLEMENT
  11. PLANT STEROLS [Concomitant]
  12. B12 [Concomitant]
  13. AMNIOTIC FLUID (HUMAN) [Suspect]
     Active Substance: AMNIOTIC FLUID (HUMAN)

REACTIONS (5)
  - Blindness [None]
  - Retinal vein occlusion [None]
  - Suspected product contamination [None]
  - Product prescribing issue [None]
  - Eye irritation [None]

NARRATIVE: CASE EVENT DATE: 20210821
